FAERS Safety Report 7843068-2 (Version None)
Quarter: 2011Q4

REPORT INFORMATION
  Report Type: 
  Country: None (occurrence: None)
  Receive Date: 20111020
  Receipt Date: 20111017
  Transmission Date: 20120403
  Serious: Yes (Death)
  Sender: FDA-Public Use
  Company Number: 2011SP048283

PATIENT
  Age: 64 Year
  Sex: Male

DRUGS (4)
  1. SOLDESAM /00016002/) [Concomitant]
  2. LANSOPRAZOLE [Concomitant]
  3. BACTRIM [Concomitant]
  4. TEMODAL [Suspect]
     Indication: GLIOBLASTOMA MULTIFORME
     Dosage: 120 MG;QD;PO
     Route: 048
     Dates: start: 20110825, end: 20110920

REACTIONS (2)
  - FEBRILE BONE MARROW APLASIA [None]
  - TOXICITY TO VARIOUS AGENTS [None]
